FAERS Safety Report 17517257 (Version 1)
Quarter: 2020Q1

REPORT INFORMATION
  Report Type: Spontaneous
  Country: US (occurrence: US)
  Receive Date: 20200306
  Receipt Date: 20200306
  Transmission Date: 20200409
  Serious: Yes (Other)
  Sender: FDA-Public Use
  Company Number: None

PATIENT
  Age: 69 Year
  Sex: Male
  Weight: 88.5 kg

DRUGS (8)
  1. LISINOPRIL 10 MG [Concomitant]
     Active Substance: LISINOPRIL
  2. MULTIVITAMIN [Concomitant]
     Active Substance: VITAMINS
  3. ATORVASTATIN 10 MG [Concomitant]
     Active Substance: ATORVASTATIN
  4. PREDNISONE 5 MG [Concomitant]
     Active Substance: PREDNISONE
  5. ALLOPURINOL 100 MG [Concomitant]
     Active Substance: ALLOPURINOL
  6. ZYTIGA [Suspect]
     Active Substance: ABIRATERONE ACETATE
     Indication: PROSTATE CANCER
     Route: 048
     Dates: start: 20190916
  7. SUPER B COMPLEX [Concomitant]
     Active Substance: CYANOCOBALAMIN\DEXPANTHENOL\NIACINAMIDE\PYRIDOXINE HYDROCHLORIDE\RIBOFLAVIN 5^-PHOSPHATE SODIUM\THIAMINE HYDROCHLORIDE\VITAMIN B COMPLEX
  8. VIT D [Concomitant]
     Active Substance: VITAMIN D NOS

REACTIONS (3)
  - Muscular weakness [None]
  - Electrolyte depletion [None]
  - Fatigue [None]

NARRATIVE: CASE EVENT DATE: 20200306
